FAERS Safety Report 8842898 (Version 1)
Quarter: 2012Q4

REPORT INFORMATION
  Report Type: 
  Country: UG (occurrence: UG)
  Receive Date: 20121016
  Receipt Date: 20121016
  Transmission Date: 20130627
  Serious: Yes (Death)
  Sender: FDA-Public Use
  Company Number: UG-WATSON-2012-17653

PATIENT
  Age: 35 Year
  Sex: Male

DRUGS (5)
  1. FLUCONAZOLE [Suspect]
     Indication: MENINGITIS CRYPTOCOCCAL
     Dosage: 400 mg, daily
     Route: 065
  2. PREDNISOLONE (UNKNOWN) [Suspect]
     Indication: IMMUNE RECONSTITUTION SYNDROME
     Dosage: 60 mg, daily
     Route: 065
  3. ZIDOVUDINE [Suspect]
     Indication: ACQUIRED IMMUNODEFICIENCY SYNDROME
     Dosage: UNK
     Route: 065
  4. LAMIVUDINE [Suspect]
     Indication: ACQUIRED IMMUNODEFICIENCY SYNDROME
     Dosage: UNK
     Route: 065
  5. EFAVIRENZ [Suspect]
     Indication: ACQUIRED IMMUNODEFICIENCY SYNDROME
     Dosage: UNK
     Route: 065

REACTIONS (4)
  - Immune reconstitution inflammatory syndrome [Fatal]
  - Meningitis cryptococcal [Fatal]
  - Drug resistance [Fatal]
  - Cryptococcosis [Fatal]
